FAERS Safety Report 8983241 (Version 1)
Quarter: 2012Q4

REPORT INFORMATION
  Report Type: 
  Country: ES (occurrence: ES)
  Receive Date: 20121224
  Receipt Date: 20121224
  Transmission Date: 20130627
  Serious: Yes (Other)
  Sender: FDA-Public Use
  Company Number: PHHY2012ES114336

PATIENT
  Sex: Male

DRUGS (1)
  1. EXTAVIA [Suspect]

REACTIONS (1)
  - Colon neoplasm [Unknown]
